FAERS Safety Report 8368640-5 (Version None)
Quarter: 2012Q2

REPORT INFORMATION
  Report Type: 
  Country: None (occurrence: None)
  Receive Date: 20120518
  Receipt Date: 20120509
  Transmission Date: 20120825
  Serious: No
  Sender: FDA-Public Use
  Company Number: US-BIOGENIDEC-2012BI016559

PATIENT
  Age: 63 Year
  Sex: Male

DRUGS (1)
  1. TYSABRI [Suspect]
     Indication: MULTIPLE SCLEROSIS
     Route: 042
     Dates: start: 20090521

REACTIONS (10)
  - PERONEAL NERVE PALSY [None]
  - COGNITIVE DISORDER [None]
  - DYSSTASIA [None]
  - CONCUSSION [None]
  - ROAD TRAFFIC ACCIDENT [None]
  - BACK PAIN [None]
  - FATIGUE [None]
  - LOSS OF CONSCIOUSNESS [None]
  - MEMORY IMPAIRMENT [None]
  - NECK PAIN [None]
